FAERS Safety Report 13367569 (Version 1)
Quarter: 2017Q1

REPORT INFORMATION
  Report Type: Spontaneous
  Country: US (occurrence: US)
  Receive Date: 20170323
  Receipt Date: 20170323
  Transmission Date: 20170429
  Serious: Yes (Other)
  Sender: FDA-Public Use
  Company Number: None

PATIENT
  Age: 48 Year
  Sex: Female
  Weight: 94.95 kg

DRUGS (1)
  1. LEVAQUIN [Suspect]
     Active Substance: LEVOFLOXACIN
     Indication: PNEUMONIA
     Dosage: ?          QUANTITY:7 TABLET(S);?
     Route: 048

REACTIONS (6)
  - Renal pain [None]
  - Pain in extremity [None]
  - Palpitations [None]
  - Peripheral coldness [None]
  - Cough [None]
  - Swelling [None]

NARRATIVE: CASE EVENT DATE: 20170220
